FAERS Safety Report 9311059 (Version 4)
Quarter: 2014Q1

REPORT INFORMATION
  Report Type: Spontaneous
  Country: US (occurrence: US)
  Receive Date: 20130528
  Receipt Date: 20140317
  Transmission Date: 20141002
  Serious: No
  Sender: FDA-Public Use
  Company Number: US-PFIZER INC-2013158591

PATIENT
  Age: 72 Year
  Sex: Female
  Weight: 53.52 kg

DRUGS (7)
  1. XELJANZ [Suspect]
     Indication: RHEUMATOID ARTHRITIS
     Dosage: 5 MG, 2X/DAY
     Route: 048
  2. PREDNISONE [Concomitant]
     Dosage: 5 MG, UNK
  3. CELEXA [Concomitant]
     Dosage: 40 MG, UNK
  4. PRAVASTATIN [Concomitant]
     Dosage: 10 MG, UNK
  5. CALCIUM [Concomitant]
     Dosage: 500 MG, UNK
  6. COQ-10 [Concomitant]
     Dosage: 100 MG, UNK
  7. METHOTREXATE [Concomitant]
     Dosage: 2.5 MG, UNK
     Route: 048

REACTIONS (5)
  - Back pain [Unknown]
  - Sinusitis [Unknown]
  - Pain in extremity [Unknown]
  - Neck pain [Unknown]
  - Musculoskeletal pain [Unknown]
